FAERS Safety Report 6238082-7 (Version None)
Quarter: 2009Q2

REPORT INFORMATION
  Report Type: 
  Country: None (occurrence: None)
  Receive Date: 20090622
  Receipt Date: 20090617
  Transmission Date: 20091009
  Serious: No
  Sender: FDA-Public Use
  Company Number: US-B.I. PHARMACEUTICALS,INC./RIDGEFIELD-2009-BP-07420BP

PATIENT
  Sex: Female

DRUGS (6)
  1. SPIRIVA [Suspect]
     Indication: COUGH
     Dosage: 18 MCG
     Route: 055
     Dates: start: 20090101
  2. TOPROL-XL [Suspect]
     Indication: HYPERTENSION
     Route: 048
  3. ASMANEX TWISTHALER [Concomitant]
     Indication: SEASONAL ALLERGY
     Route: 045
  4. CELEXA [Concomitant]
     Indication: DEPRESSION
     Route: 048
  5. ACTONEL [Concomitant]
     Indication: OSTEOPENIA
     Route: 048
  6. LESCOL [Concomitant]
     Indication: BLOOD CHOLESTEROL INCREASED
     Route: 048

REACTIONS (2)
  - COUGH [None]
  - RASH [None]
